FAERS Safety Report 5719913-3 (Version None)
Quarter: 2008Q2

REPORT INFORMATION
  Report Type: 
  Country: None (occurrence: None)
  Receive Date: 20080428
  Receipt Date: 20080421
  Transmission Date: 20081010
  Serious: Yes (Other)
  Sender: FDA-Public Use
  Company Number: PHNU2008DE00583

PATIENT
  Sex: Male
  Weight: 45 kg

DRUGS (4)
  1. TOBRAMYCIN [Suspect]
     Indication: CYSTIC FIBROSIS
     Dosage: 460 MG/D
     Route: 042
     Dates: start: 20071112, end: 20071205
  2. TOBRAMYCIN [Suspect]
     Dosage: 460 MG/D
     Dates: start: 20071217, end: 20080107
  3. VORICONAZOLE [Suspect]
     Indication: ASPERGILLOSIS
     Dosage: 400 MG, UNK
     Route: 048
     Dates: start: 20071129, end: 20080116
  4. TOBI [Suspect]
     Indication: CYSTIC FIBROSIS
     Dosage: 300 MG, BID
     Dates: start: 20010301

REACTIONS (4)
  - BRONCHOPULMONARY ASPERGILLOSIS [None]
  - CONDITION AGGRAVATED [None]
  - DEAFNESS BILATERAL [None]
  - LUNG INFECTION PSEUDOMONAL [None]
